FAERS Safety Report 21092743 (Version 1)
Quarter: 2022Q3

REPORT INFORMATION
  Report Type: Spontaneous
  Country: DE (occurrence: DE)
  Receive Date: 20220718
  Receipt Date: 20220718
  Transmission Date: 20221027
  Serious: Yes (Other)
  Sender: FDA-Public Use
  Company Number: DE-CIPLA (EU) LIMITED-2022DE04355

PATIENT
  Sex: Female

DRUGS (5)
  1. TENOFOVIR [Suspect]
     Active Substance: TENOFOVIR
     Indication: Product used for unknown indication
     Dosage: 1 PC PER DAY, UNK
     Route: 065
     Dates: start: 20190309
  2. COMIRNATY [Suspect]
     Active Substance: TOZINAMERAN
     Indication: Product used for unknown indication
     Dosage: PFIZER BIONTECH (2ND DOSE), UNK
     Route: 065
     Dates: start: 20210506, end: 20210506
  3. COMIRNATY [Suspect]
     Active Substance: TOZINAMERAN
     Dosage: PFIZER BIONTECH (2ND DOSE), UNK
     Route: 065
     Dates: start: 20210617, end: 20210617
  4. LEVOTHYROXINE SODIUM [Suspect]
     Active Substance: LEVOTHYROXINE SODIUM
     Indication: Product used for unknown indication
     Dosage: 1 PC PER DAY, UNK
     Route: 065
     Dates: start: 20190303
  5. SPIKEVAX [Suspect]
     Active Substance: ELASOMERAN
     Indication: Product used for unknown indication
     Dosage: MODERNA (3RD DOSE), UNK
     Route: 065
     Dates: start: 20211209, end: 20211209

REACTIONS (2)
  - Nephrolithiasis [Not Recovered/Not Resolved]
  - Decreased appetite [Not Recovered/Not Resolved]

NARRATIVE: CASE EVENT DATE: 20210901
